FAERS Safety Report 16667930 (Version 1)
Quarter: 2019Q3

REPORT INFORMATION
  Report Type: Spontaneous
  Country: US (occurrence: US)
  Receive Date: 20190619
  Receipt Date: 20190619
  Transmission Date: 20191004
  Serious: No
  Sender: FDA-Public Use
  Company Number: None

PATIENT
  Age: 74 Year
  Sex: Female
  Weight: 54.43 kg

DRUGS (6)
  1. LEVALBUTEROL TARTRATE. [Suspect]
     Active Substance: LEVALBUTEROL TARTRATE
     Indication: DYSPNOEA
     Dosage: ?          QUANTITY:15 G GRAM(S);?
     Route: 055
     Dates: start: 20190115, end: 20190123
  2. VITAMIN D 2000 [Concomitant]
     Active Substance: VITAMIN D NOS
  3. GABAPENTIN. [Concomitant]
     Active Substance: GABAPENTIN
  4. LEVALBUTEROL TARTRATE. [Suspect]
     Active Substance: LEVALBUTEROL TARTRATE
     Indication: ASTHMA
     Dosage: ?          QUANTITY:15 G GRAM(S);?
     Route: 055
     Dates: start: 20190115, end: 20190123
  5. AZELASTINE HYDROCHLORIDE NASAL SPRAY [Concomitant]
     Active Substance: AZELASTINE HYDROCHLORIDE
  6. CALCIUM CITRATE [Concomitant]
     Active Substance: CALCIUM CITRATE

REACTIONS (1)
  - Eructation [None]

NARRATIVE: CASE EVENT DATE: 20190119
